FAERS Safety Report 9358390 (Version 2)
Quarter: 2014Q1

REPORT INFORMATION
  Report Type: Report from Study
  Country: AU (occurrence: AU)
  Receive Date: 20130620
  Receipt Date: 20140219
  Transmission Date: 20141002
  Serious: Yes (Other)
  Sender: FDA-Public Use
  Company Number: PHHY2013AU063004

PATIENT
  Age: 52 Year
  Sex: Male
  Weight: 80 kg

DRUGS (1)
  1. CLOZAPINE [Suspect]
     Dosage: 375 MG, DAILY

REACTIONS (1)
  - Lymphoma [Not Recovered/Not Resolved]
